FAERS Safety Report 18411801 (Version 1)
Quarter: 2020Q4

REPORT INFORMATION
  Report Type: Spontaneous
  Country: PT (occurrence: PT)
  Receive Date: 20201021
  Receipt Date: 20201021
  Transmission Date: 20210114
  Serious: Yes (Hospitalization, Other)
  Sender: FDA-Public Use
  Company Number: PT-MYLANLABS-2020M1088365

PATIENT
  Age: 45 Year
  Sex: Female

DRUGS (23)
  1. LEVETIRACETAM. [Suspect]
     Active Substance: LEVETIRACETAM
     Dosage: 4000 MILLIGRAM PER DAY
     Dates: start: 2011
  2. RISPERIDONE. [Concomitant]
     Active Substance: RISPERIDONE
     Dosage: 6 MILLIGRAM PER DAY
  3. CLOBAZAM. [Concomitant]
     Active Substance: CLOBAZAM
     Dosage: 40 MILLIGRAM PER DAY
     Dates: start: 2015
  4. CARBAMAZEPINE. [Concomitant]
     Active Substance: CARBAMAZEPINE
     Dosage: 1200 MILLIGRAM PER DAY
     Dates: start: 2010
  5. CLOBAZAM. [Concomitant]
     Active Substance: CLOBAZAM
     Dosage: 20 MILLIGRAM PER DAY
     Dates: start: 2009
  6. RISPERIDONE. [Concomitant]
     Active Substance: RISPERIDONE
     Indication: PRODUCT USED FOR UNKNOWN INDICATION
     Dosage: 50 MG/ML
  7. CLONAZEPAM. [Concomitant]
     Active Substance: CLONAZEPAM
     Indication: SEIZURE
     Dosage: 4 MILLIGRAM PER DAY
     Dates: start: 2012
  8. CARBAMAZEPINE. [Concomitant]
     Active Substance: CARBAMAZEPINE
     Indication: SEIZURE
     Dosage: 1200 MILLIGRAM PER DAY
     Dates: start: 2007
  9. CARBAMAZEPINE. [Concomitant]
     Active Substance: CARBAMAZEPINE
     Dosage: 1200 MILLIGRAM PER DAY
     Dates: start: 2009
  10. CARBAMAZEPINE. [Concomitant]
     Active Substance: CARBAMAZEPINE
     Dosage: 1800 MILLIGRAM PER DAY
     Dates: start: 2012
  11. LEVETIRACETAM. [Suspect]
     Active Substance: LEVETIRACETAM
     Indication: SEIZURE
     Dosage: 1000 MILLIGRAM PER DAY
     Dates: start: 2007
  12. LEVETIRACETAM. [Suspect]
     Active Substance: LEVETIRACETAM
     Dosage: 4000 MILLIGRAM PER DAY
     Dates: start: 2010
  13. LEVETIRACETAM. [Suspect]
     Active Substance: LEVETIRACETAM
     Dosage: 4000 MILLIGRAM PER DAY
     Dates: start: 2012
  14. CLOBAZAM. [Concomitant]
     Active Substance: CLOBAZAM
     Indication: SEIZURE
     Dosage: 20 MILLIGRAM PER DAY
     Dates: start: 2007
  15. CLOBAZAM. [Concomitant]
     Active Substance: CLOBAZAM
     Dosage: 40 MILLIGRAM PER DAY
     Dates: start: 2012
  16. CARBAMAZEPINE. [Concomitant]
     Active Substance: CARBAMAZEPINE
     Dosage: 1800 MILLIGRAM PER DAY
     Dates: start: 2011
  17. CARBAMAZEPINE. [Concomitant]
     Active Substance: CARBAMAZEPINE
     Dosage: 1200 MILLIGRAM PER DAY
     Dates: start: 2015
  18. LEVETIRACETAM. [Suspect]
     Active Substance: LEVETIRACETAM
     Dosage: 4000 MILLIGRAM PER DAY
     Dates: start: 2015
  19. CLOBAZAM. [Concomitant]
     Active Substance: CLOBAZAM
     Dosage: 40 MILLIGRAM PER DAY
     Dates: start: 2010
  20. CLOBAZAM. [Concomitant]
     Active Substance: CLOBAZAM
     Dosage: 40 MILLIGRAM PER DAY
     Dates: start: 2011
  21. CLONAZEPAM. [Concomitant]
     Active Substance: CLONAZEPAM
     Dosage: 4 MILLIGRAM PER DAY
     Dates: start: 2015
  22. LEVETIRACETAM. [Suspect]
     Active Substance: LEVETIRACETAM
     Dosage: 4000 MILLIGRAM PER DAY
     Dates: start: 2009
  23. ZOTEPINE [Concomitant]
     Active Substance: ZOTEPINE
     Indication: PRODUCT USED FOR UNKNOWN INDICATION
     Dosage: UNKNOWN DOSE

REACTIONS (4)
  - Epilepsy [Unknown]
  - Prescribed overdose [Unknown]
  - Schizophrenia [Recovered/Resolved]
  - Drug ineffective [Unknown]

NARRATIVE: CASE EVENT DATE: 2009
